FAERS Safety Report 16718077 (Version 1)
Quarter: 2019Q3

REPORT INFORMATION
  Report Type: Other
  Country: DK (occurrence: DK)
  Receive Date: 20190819
  Receipt Date: 20190819
  Transmission Date: 20191005
  Serious: Yes (Other)
  Sender: FDA-Public Use
  Company Number: DK-CELLTRION INC.-2016DK001817

PATIENT

DRUGS (4)
  1. METHOTREXATE. [Concomitant]
     Active Substance: METHOTREXATE
     Indication: RHEUMATOID ARTHRITIS
     Dosage: UNK
     Dates: start: 201602
  2. PREDNISOLONE. [Concomitant]
     Active Substance: PREDNISOLONE
     Indication: RHEUMATOID ARTHRITIS
  3. FOLIC ACID. [Concomitant]
     Active Substance: FOLIC ACID
     Indication: VITAMIN SUPPLEMENTATION
     Dosage: 10 MG, 1 WEEK (CUMULATIVE DOSE TO FIRST REACTION: 90 MG, DOSAGE TEXT: 5 MG)
     Route: 048
     Dates: start: 20150825
  4. REMSIMA [Suspect]
     Active Substance: INFLIXIMAB
     Indication: RHEUMATOID ARTHRITIS
     Dosage: 300 MG, UNK
     Route: 042
     Dates: start: 20150623, end: 20160517

REACTIONS (17)
  - Musculoskeletal pain [Not Recovered/Not Resolved]
  - Drug ineffective [Unknown]
  - General physical health deterioration [Not Recovered/Not Resolved]
  - Pain in jaw [Not Recovered/Not Resolved]
  - Pain in extremity [Not Recovered/Not Resolved]
  - Swelling face [Recovered/Resolved]
  - Gait disturbance [Unknown]
  - Peripheral swelling [Recovered/Resolved]
  - Quality of life decreased [Not Recovered/Not Resolved]
  - Foot operation [Recovered/Resolved]
  - Product substitution issue [Unknown]
  - Synovitis [Unknown]
  - Joint swelling [Recovered/Resolved]
  - Arthralgia [Not Recovered/Not Resolved]
  - Rheumatoid arthritis [Unknown]
  - Product substitution [Unknown]
  - General physical condition decreased [Unknown]

NARRATIVE: CASE EVENT DATE: 20150623
